FAERS Safety Report 7525002-8 (Version None)
Quarter: 2011Q2

REPORT INFORMATION
  Report Type: 
  Country: None (occurrence: None)
  Receive Date: 20110606
  Receipt Date: 20110531
  Transmission Date: 20111010
  Serious: Yes (Death)
  Sender: FDA-Public Use
  Company Number: US-ASTELLAS-2011US002566

PATIENT
  Sex: Male

DRUGS (1)
  1. PROGRAF [Suspect]
     Indication: LUNG TRANSPLANT
     Dosage: 6.5 MG, BID
     Route: 048
     Dates: start: 20080603, end: 20110305

REACTIONS (2)
  - OFF LABEL USE [None]
  - NEOPLASM MALIGNANT [None]
